FAERS Safety Report 17675139 (Version 4)
Quarter: 2021Q1

REPORT INFORMATION
  Report Type: Report from Study
  Country: US (occurrence: US)
  Receive Date: 20200416
  Receipt Date: 20210205
  Transmission Date: 20210419
  Serious: Yes (Hospitalization, Other)
  Sender: FDA-Public Use
  Company Number: US-TAKEDA-2020TUS018525

PATIENT
  Age: 87 Year
  Sex: Female

DRUGS (1)
  1. IXAZOMIB [Suspect]
     Active Substance: IXAZOMIB
     Indication: PLASMA CELL MYELOMA
     Dosage: 4 MILLIGRAM
     Route: 048
     Dates: start: 201906, end: 20200717

REACTIONS (5)
  - Influenza [Unknown]
  - Pneumonia [Unknown]
  - Nausea [Unknown]
  - Plasma cell myeloma [Unknown]
  - Asthenia [Unknown]

NARRATIVE: CASE EVENT DATE: 20200313
